FAERS Safety Report 9346997 (Version 2)
Quarter: 2013Q3

REPORT INFORMATION
  Report Type: Spontaneous
  Country: ES (occurrence: ES)
  Receive Date: 20130613
  Receipt Date: 20130701
  Transmission Date: 20140515
  Serious: Yes (Hospitalization)
  Sender: FDA-Public Use
  Company Number: PHHY2013ES058953

PATIENT
  Age: 43 Year
  Sex: Male

DRUGS (4)
  1. OLANZAPINE [Suspect]
     Indication: HUNTINGTON^S DISEASE
     Dosage: 10 MG, DAILY
  2. OLANZAPINE [Suspect]
     Indication: OFF LABEL USE
     Dosage: 5 MG, DAILY
  3. DIAZEPAM [Concomitant]
     Indication: ANXIETY
     Dosage: 5 MG, TID
  4. ESCITALOPRAM [Concomitant]
     Indication: DEPRESSION
     Dosage: 10 MG, DAILY

REACTIONS (8)
  - Hypernatraemia [Recovered/Resolved]
  - Dysphagia [Recovering/Resolving]
  - Neuroleptic malignant syndrome [Recovering/Resolving]
  - Parkinsonism [Recovering/Resolving]
  - Hyperthermia [Recovered/Resolved]
  - Tachycardia [Recovering/Resolving]
  - Hyperhidrosis [Recovering/Resolving]
  - Muscle rigidity [Recovering/Resolving]
